FAERS Safety Report 6746645-5 (Version None)
Quarter: 2010Q2

REPORT INFORMATION
  Report Type: 
  Country: None (occurrence: None)
  Receive Date: 20100528
  Receipt Date: 20091102
  Transmission Date: 20101027
  Serious: No
  Sender: FDA-Public Use
  Company Number: US-ASTRAZENECA-2009SE32112

PATIENT
  Sex: Female

DRUGS (4)
  1. PRILOSEC OTC [Suspect]
     Route: 048
     Dates: start: 20091022, end: 20091102
  2. ASPIRIN [Concomitant]
     Dosage: UNKNOWN
  3. NEURONTIN [Concomitant]
     Dosage: UNKNOWN
  4. TRILEPTAL [Concomitant]
     Dosage: UNKNOWN

REACTIONS (1)
  - CHROMATURIA [None]
